FAERS Safety Report 10353769 (Version 2)
Quarter: 2014Q3

REPORT INFORMATION
  Report Type: Spontaneous
  Country: US (occurrence: US)
  Receive Date: 20140731
  Receipt Date: 20140731
  Transmission Date: 20150326
  Serious: Yes (Hospitalization, Other)
  Sender: FDA-Public Use
  Company Number: US-009507513-2010SP030338

PATIENT
  Sex: Female
  Weight: 89.36 kg

DRUGS (1)
  1. NUVARING [Suspect]
     Active Substance: ETHINYL ESTRADIOL\ETONOGESTREL
     Indication: CONTRACEPTION
     Dosage: UNK
     Route: 067
     Dates: start: 2006, end: 20080710

REACTIONS (16)
  - Mesenteric vein thrombosis [Unknown]
  - Leukocytosis [Unknown]
  - Pulmonary mass [Unknown]
  - Fall [Unknown]
  - Colitis [Unknown]
  - Gastritis [Unknown]
  - Sinus disorder [Unknown]
  - Abdominal pain [Unknown]
  - Nausea [Unknown]
  - Back injury [Unknown]
  - Hypothyroidism [Unknown]
  - Ear disorder [Unknown]
  - Migraine [Unknown]
  - Irritable bowel syndrome [Unknown]
  - Cholelithiasis [Unknown]
  - Gallbladder disorder [Unknown]

NARRATIVE: CASE EVENT DATE: 20070421
